FAERS Safety Report 20489463 (Version 2)
Quarter: 2022Q2

REPORT INFORMATION
  Report Type: Report from Study
  Country: CO (occurrence: CO)
  Receive Date: 20220218
  Receipt Date: 20220516
  Transmission Date: 20220720
  Serious: Yes (Other)
  Sender: FDA-Public Use
  Company Number: CO-JNJFOC-20220226364

PATIENT
  Age: 27 Year
  Sex: Male
  Weight: 84 kg

DRUGS (7)
  1. INVEGA TRINZA [Suspect]
     Active Substance: PALIPERIDONE PALMITATE
     Indication: Schizophrenia
     Route: 030
     Dates: start: 20200328, end: 20210604
  2. INVEGA TRINZA [Suspect]
     Active Substance: PALIPERIDONE PALMITATE
     Route: 030
     Dates: start: 20220228
  3. INVEGA TRINZA [Suspect]
     Active Substance: PALIPERIDONE PALMITATE
  4. ESOMEPRAZOLE [Concomitant]
     Active Substance: ESOMEPRAZOLE
  5. RISPERIDONE [Concomitant]
     Active Substance: RISPERIDONE
     Route: 065
  6. VALPROATE SODIUM [Concomitant]
     Active Substance: VALPROATE SODIUM
  7. CLONAZEPAM [Concomitant]
     Active Substance: CLONAZEPAM

REACTIONS (9)
  - Deep vein thrombosis [Not Recovered/Not Resolved]
  - Schizophrenia [Not Recovered/Not Resolved]
  - Superficial vein thrombosis [Not Recovered/Not Resolved]
  - Limb injury [Not Recovered/Not Resolved]
  - Aneurysm [Not Recovered/Not Resolved]
  - Pain [Not Recovered/Not Resolved]
  - Fatigue [Not Recovered/Not Resolved]
  - Pruritus [Not Recovered/Not Resolved]
  - Muscle spasms [Not Recovered/Not Resolved]

NARRATIVE: CASE EVENT DATE: 20211224
